FAERS Safety Report 22827853 (Version 5)
Quarter: 2023Q4

REPORT INFORMATION
  Report Type: Spontaneous
  Country: US (occurrence: US)
  Receive Date: 20230816
  Receipt Date: 20231204
  Transmission Date: 20240109
  Serious: No
  Sender: FDA-Public Use
  Company Number: US-PFIZER INC-202300272790

PATIENT
  Age: 15 Year
  Sex: Male
  Weight: 43.54 kg

DRUGS (1)
  1. GENOTROPIN [Suspect]
     Active Substance: SOMATROPIN
     Dosage: 2.2 ML, DAILY
     Dates: start: 202302

REACTIONS (5)
  - Device breakage [Unknown]
  - Device physical property issue [Unknown]
  - Device delivery system issue [Unknown]
  - Device mechanical issue [Unknown]
  - Drug dose omission by device [Unknown]
